FAERS Safety Report 7998994 (Version 2)
Quarter: 2014Q2

REPORT INFORMATION
  Report Type: Spontaneous
  Country: None (occurrence: None)
  Receive Date: 20110602
  Receipt Date: 20140416
  Transmission Date: 20141212
  Serious: Yes (Congenital Anomaly)
  Sender: FDA-Public Use
  Company Number: AUR-APL-2011-01825

PATIENT
  Sex: Male
  Weight: 3.18 kg

DRUGS (1)
  1. TOPIRAMATE [Suspect]
     Indication: EPILEPSY
     Dosage: 50M-BID-TRANSPLACENTAL
     Route: 064

REACTIONS (4)
  - Cleft lip [None]
  - Hypertelorism of orbit [None]
  - Atrial septal defect [None]
  - Maternal drugs affecting foetus [None]
